FAERS Safety Report 16070406 (Version 5)
Quarter: 2021Q4

REPORT INFORMATION
  Report Type: Spontaneous
  Country: CA (occurrence: CA)
  Receive Date: 20190314
  Receipt Date: 20211124
  Transmission Date: 20220303
  Serious: Yes (Hospitalization)
  Sender: FDA-Public Use
  Company Number: 2018104483

PATIENT
  Age: 31 Year
  Sex: Male
  Weight: 88 kg

DRUGS (3)
  1. INFLIXIMAB [Suspect]
     Active Substance: INFLIXIMAB
     Indication: Colitis ulcerative
     Route: 042
  2. INFLIXIMAB [Suspect]
     Active Substance: INFLIXIMAB
     Route: 042
  3. AZATHIOPRINE [Concomitant]
     Active Substance: AZATHIOPRINE
     Indication: Product used for unknown indication
     Dosage: UNKNOWN
     Route: 065

REACTIONS (12)
  - Blood pressure fluctuation [Recovered/Resolved]
  - Bronchitis [Recovered/Resolved]
  - Condition aggravated [Recovered/Resolved]
  - Cough [Recovered/Resolved]
  - Nasopharyngitis [Recovered/Resolved]
  - Rhinorrhoea [Recovered/Resolved]
  - Malaise [Recovered/Resolved]
  - Heart rate decreased [Recovered/Resolved]
  - Inappropriate schedule of product administration [Recovered/Resolved]
  - Product use issue [Recovered/Resolved]
  - Intentional product use issue [Recovered/Resolved]
  - Off label use [Recovered/Resolved]
